FAERS Safety Report 25296738 (Version 1)
Quarter: 2025Q2

REPORT INFORMATION
  Report Type: Spontaneous
  Country: US (occurrence: US)
  Receive Date: 20250511
  Receipt Date: 20250511
  Transmission Date: 20250717
  Serious: No
  Sender: UCB
  Company Number: US-UCBSA-2024026436

PATIENT
  Age: 44 Year
  Sex: Female
  Weight: 90.703 kg

DRUGS (1)
  1. CIMZIA [Suspect]
     Active Substance: CERTOLIZUMAB PEGOL
     Indication: Rheumatoid arthritis
     Dosage: 200 MILLIGRAM, EV 2 WEEKS(QOW)(AS DIRECTED)
     Route: 058
     Dates: start: 202405

REACTIONS (2)
  - Swelling [Unknown]
  - Treatment failure [Unknown]

NARRATIVE: CASE EVENT DATE: 20240501
